FAERS Safety Report 18176208 (Version 2)
Quarter: 2021Q1

REPORT INFORMATION
  Report Type: Report from Study
  Country: GB (occurrence: GB)
  Receive Date: 20200820
  Receipt Date: 20210107
  Transmission Date: 20210419
  Serious: Yes (Other)
  Sender: FDA-Public Use
  Company Number: GB-SAMSUNG BIOEPIS-SB-2020-25974

PATIENT
  Sex: Female

DRUGS (2)
  1. IMRALDI [Suspect]
     Active Substance: ADALIMUMAB
     Route: 058
     Dates: start: 20200902
  2. IMRALDI [Suspect]
     Active Substance: ADALIMUMAB
     Indication: PSORIATIC ARTHROPATHY
     Route: 058
     Dates: start: 20190902

REACTIONS (5)
  - COVID-19 [Unknown]
  - Ill-defined disorder [Unknown]
  - Dyspnoea [Unknown]
  - Infection [Unknown]
  - Influenza like illness [Unknown]
